FAERS Safety Report 4285727-7 (Version None)
Quarter: 2004Q1

REPORT INFORMATION
  Report Type: 
  Country: None (occurrence: None)
  Receive Date: 20040203
  Receipt Date: 20040203
  Transmission Date: 20041129
  Serious: Yes (Hospitalization, Other)
  Sender: FDA-Public Use
  Company Number: None

PATIENT
  Age: 41 Year
  Sex: Female

DRUGS (11)
  1. CLOZAPINE [Suspect]
     Indication: SCHIZOAFFECTIVE DISORDER
     Dosage: 100 MG
     Route: 048
  2. ORTHO EVRA [Concomitant]
  3. SEROQUEL [Concomitant]
  4. CYTONEL [Concomitant]
  5. LEVOTHYROXINE SODIUM [Concomitant]
  6. NEURONTIN [Concomitant]
  7. LAMICTAL [Concomitant]
  8. ASPIRIN [Concomitant]
  9. ZOLOFT [Concomitant]
  10. LITHIUM CARBONATE [Concomitant]
  11. ABILIFY [Concomitant]

REACTIONS (1)
  - PULMONARY EMBOLISM [None]
